FAERS Safety Report 4398041-6 (Version None)
Quarter: 2004Q3

REPORT INFORMATION
  Report Type: 
  Country: None (occurrence: None)
  Receive Date: 20040713
  Receipt Date: 20040629
  Transmission Date: 20050211
  Serious: Yes (Other)
  Sender: FDA-Public Use
  Company Number: 2004-BP-05114AU

PATIENT
  Sex: Female

DRUGS (1)
  1. ASASANTIN SR [Suspect]
     Dosage: SEE TEXT, (STRENGTH: 200/25 MG/MG), PO
     Route: 048
     Dates: start: 20030101

REACTIONS (2)
  - NEOPLASM RECURRENCE [None]
  - SKIN CANCER [None]
